FAERS Safety Report 4887099-3 (Version None)
Quarter: 2006Q1

REPORT INFORMATION
  Report Type: 
  Country: None (occurrence: None)
  Receive Date: 20060120
  Receipt Date: 20051005
  Transmission Date: 20060701
  Serious: Yes (Hospitalization)
  Sender: FDA-Public Use
  Company Number: US-MERCK-0510USA04313

PATIENT
  Age: 27 Year
  Sex: Female
  Weight: 86 kg

DRUGS (2)
  1. VIOXX [Suspect]
     Indication: RHEUMATOID ARTHRITIS
     Route: 048
     Dates: start: 20000628, end: 20000711
  2. PLAQUENIL [Concomitant]
     Route: 065

REACTIONS (6)
  - ANXIETY [None]
  - ATRIOVENTRICULAR BLOCK [None]
  - CARDIAC DISORDER [None]
  - STRESS [None]
  - TACHYCARDIA [None]
  - TARSAL TUNNEL SYNDROME [None]
